FAERS Safety Report 14315247 (Version 1)
Quarter: 2017Q4

REPORT INFORMATION
  Report Type: Spontaneous
  Country: US (occurrence: US)
  Receive Date: 20171221
  Receipt Date: 20171221
  Transmission Date: 20180321
  Serious: Yes (Other)
  Sender: FDA-Public Use
  Company Number: US-PFIZER INC-2017538402

PATIENT
  Age: 26 Year
  Sex: Male

DRUGS (3)
  1. VINBLASTINE [Suspect]
     Active Substance: VINBLASTINE
     Indication: GERM CELL CANCER
     Dosage: UNK, CYCLIC (1 CYCLE)
  2. CISPLATIN. [Suspect]
     Active Substance: CISPLATIN
     Indication: GERM CELL CANCER
     Dosage: UNK, CYCLIC (1 CYCLE)
  3. BLEOMYCIN SULFATE [Suspect]
     Active Substance: BLEOMYCIN SULFATE
     Indication: GERM CELL CANCER
     Dosage: UNK, CYCLIC (1 CYCLE)

REACTIONS (1)
  - Pseudomembranous colitis [Recovered/Resolved]
